FAERS Safety Report 8952392 (Version 3)
Quarter: 2013Q1

REPORT INFORMATION
  Report Type: Spontaneous
  Country: US (occurrence: US)
  Receive Date: 20121205
  Receipt Date: 20130201
  Transmission Date: 20140127
  Serious: No
  Sender: FDA-Public Use
  Company Number: US-BIOGENIDEC-2012BI056476

PATIENT
  Age: 37 Year
  Sex: Female

DRUGS (2)
  1. TYSABRI [Suspect]
     Indication: MULTIPLE SCLEROSIS
     Route: 042
     Dates: start: 20121107
  2. TYSABRI [Suspect]
     Indication: MULTIPLE SCLEROSIS
     Route: 042
     Dates: start: 20130114

REACTIONS (5)
  - Palpitations [Recovered/Resolved]
  - Dysgeusia [Not Recovered/Not Resolved]
  - Frustration [Not Recovered/Not Resolved]
  - Anxiety [Not Recovered/Not Resolved]
  - Poor venous access [Recovered/Resolved]
